FAERS Safety Report 15722601 (Version 1)
Quarter: 2018Q4

REPORT INFORMATION
  Report Type: Spontaneous
  Country: US (occurrence: US)
  Receive Date: 20181207
  Receipt Date: 20181207
  Transmission Date: 20190205
  Serious: Yes (Other)
  Sender: FDA-Public Use
  Company Number: None

PATIENT
  Age: 37 Year
  Sex: Female
  Weight: 74.39 kg

DRUGS (1)
  1. STIMATE [Suspect]
     Active Substance: DESMOPRESSIN ACETATE
     Indication: VON WILLEBRAND^S DISEASE
     Dosage: OTHER FREQUENCY:DAY 1 + 2 OF MENSES;?
     Route: 055

REACTIONS (2)
  - Hot flush [None]
  - Feeling abnormal [None]

NARRATIVE: CASE EVENT DATE: 20181206
